FAERS Safety Report 9315202 (Version 1)
Quarter: 2013Q2

REPORT INFORMATION
  Report Type: Report from Study
  Country: NO (occurrence: NO)
  Receive Date: 20130529
  Receipt Date: 20130529
  Transmission Date: 20140414
  Serious: Yes (Life-Threatening)
  Sender: FDA-Public Use
  Company Number: PHHO2013NO007051

PATIENT
  Age: 41 Year
  Sex: Male
  Weight: 75.3 kg

DRUGS (3)
  1. AMN107 [Suspect]
     Indication: CHRONIC MYELOID LEUKAEMIA
     Dosage: 600 MG, BID
     Route: 048
     Dates: start: 20110216, end: 20130212
  2. AMN107 [Suspect]
     Dosage: 800 MG, BID
     Route: 048
     Dates: start: 20130514, end: 20130525
  3. IMATINIB [Concomitant]
     Indication: CHRONIC MYELOID LEUKAEMIA
     Dosage: 400 MG, QD
     Route: 048
     Dates: start: 20130213, end: 20130514

REACTIONS (1)
  - Myocardial infarction [Recovering/Resolving]
